FAERS Safety Report 24187259 (Version 4)
Quarter: 2025Q2

REPORT INFORMATION
  Report Type: Spontaneous
  Country: GR (occurrence: GR)
  Receive Date: 20240808
  Receipt Date: 20250530
  Transmission Date: 20250717
  Serious: Yes (Other)
  Sender: ROCHE
  Company Number: GR-002147023-NVSC2024GR145585

PATIENT
  Age: 58 Year
  Sex: Female

DRUGS (4)
  1. XOLAIR [Suspect]
     Active Substance: OMALIZUMAB
     Indication: Urticaria
     Route: 065
     Dates: start: 202310
  2. XOLAIR [Suspect]
     Active Substance: OMALIZUMAB
     Indication: Dermatitis atopic
     Route: 050
  3. XOLAIR [Suspect]
     Active Substance: OMALIZUMAB
     Indication: Eczema
  4. CETIRIZINE HYDROCHLORIDE [Concomitant]
     Active Substance: CETIRIZINE HYDROCHLORIDE
     Indication: Hypersensitivity
     Dosage: UNK, QD (EVERY NIGHT)
     Route: 065
     Dates: start: 202309

REACTIONS (8)
  - Hypoaesthesia [Recovered/Resolved]
  - Acne [Recovered/Resolved]
  - Neck pain [Recovered/Resolved]
  - Injection site bruising [Recovered/Resolved]
  - Musculoskeletal discomfort [Recovered/Resolved]
  - Throat irritation [Recovered/Resolved]
  - Oropharyngeal discomfort [Recovered/Resolved]
  - Oropharyngeal pain [Recovered/Resolved]

NARRATIVE: CASE EVENT DATE: 20240711
